FAERS Safety Report 11773892 (Version 1)
Quarter: 2015Q4

REPORT INFORMATION
  Report Type: Spontaneous
  Country: CN (occurrence: CN)
  Receive Date: 20151124
  Receipt Date: 20151124
  Transmission Date: 20160304
  Serious: Yes (Death, Hospitalization)
  Sender: FDA-Public Use
  Company Number: CN-COVIS PHARMA S.A.R.L.-2015COV00149

PATIENT
  Age: 59 Year
  Sex: Male

DRUGS (2)
  1. RILUTEK [Suspect]
     Active Substance: RILUZOLE
     Indication: AMYOTROPHIC LATERAL SCLEROSIS
     Dosage: 50 MG, UNK
     Route: 048
     Dates: start: 201502, end: 20150313
  2. CYANOCOBALAMIN. [Concomitant]
     Active Substance: CYANOCOBALAMIN
     Dosage: UNK
     Dates: start: 201404, end: 20150313

REACTIONS (4)
  - Mental disorder [Not Recovered/Not Resolved]
  - Pneumonia [Fatal]
  - Chest discomfort [Not Recovered/Not Resolved]
  - Electrocardiogram abnormal [None]

NARRATIVE: CASE EVENT DATE: 20150313
